FAERS Safety Report 7529347-7 (Version None)
Quarter: 2011Q2

REPORT INFORMATION
  Report Type: 
  Country: None (occurrence: None)
  Receive Date: 20110607
  Receipt Date: 20050512
  Transmission Date: 20111010
  Serious: Yes (Death, Hospitalization, Other)
  Sender: FDA-Public Use
  Company Number: PHHO2005CA06942

PATIENT
  Sex: Female

DRUGS (6)
  1. SIALOR [Concomitant]
  2. KEMADRIN [Concomitant]
  3. CLOZARIL [Suspect]
     Indication: BIPOLAR DISORDER
     Dosage: 600 MG, QD
     Route: 048
     Dates: start: 20050331, end: 20050426
  4. CLOPIXOL [Concomitant]
  5. SEROQUEL [Concomitant]
  6. WELLBUTRIN [Concomitant]

REACTIONS (7)
  - PERITONITIS [None]
  - LARGE INTESTINE PERFORATION [None]
  - MULTI-ORGAN FAILURE [None]
  - ABDOMINAL PAIN [None]
  - ABSCESS [None]
  - WHITE BLOOD CELL COUNT DECREASED [None]
  - SEPTIC SHOCK [None]
